FAERS Safety Report 8579713-6 (Version None)
Quarter: 2012Q3

REPORT INFORMATION
  Report Type: 
  Country: None (occurrence: None)
  Receive Date: 20120726
  Receipt Date: 20120710
  Transmission Date: 20120928
  Serious: Yes (Other)
  Sender: FDA-Public Use
  Company Number: PNIS20120017

PATIENT
  Age: 56 Year
  Sex: Female

DRUGS (4)
  1. LEFLUNOMIDE [Suspect]
     Indication: RHEUMATOID ARTHRITIS
     Dosage: 20 MG
  2. PREDNISOLONE [Suspect]
     Indication: RHEUMATOID ARTHRITIS
     Dosage: 5 MG
  3. FOSAMAX [Suspect]
     Indication: OSTEOPOROSIS
     Dosage: 10 MG, 1 IN 1 WK
  4. FOLATE/ B12 (FOLIC ACID) (FOLIC ACID) [Concomitant]

REACTIONS (2)
  - OSTEONECROSIS OF JAW [None]
  - OSTEOPOROSIS [None]
